FAERS Safety Report 7944465-7 (Version None)
Quarter: 2011Q4

REPORT INFORMATION
  Report Type: 
  Country: None (occurrence: None)
  Receive Date: 20111122
  Receipt Date: 20110822
  Transmission Date: 20120403
  Serious: No
  Sender: FDA-Public Use
  Company Number: PHHY2011US59638

PATIENT
  Age: 34 Year
  Sex: Female

DRUGS (4)
  1. VITAMIN D [Concomitant]
  2. DEPO-PROVERA [Concomitant]
  3. GILENYA [Suspect]
     Indication: MULTIPLE SCLEROSIS
     Dosage: 0.5 MG, DAILY, ORAL
     Route: 048
     Dates: start: 20110518
  4. MULTIVITAMINS (ASCORBIC ACID, ERGOCALCIFEROL, FOLIC ACIDK, NICOTINAMID [Concomitant]

REACTIONS (2)
  - TREMOR [None]
  - YELLOW SKIN [None]
